FAERS Safety Report 6417622-9 (Version None)
Quarter: 2009Q4

REPORT INFORMATION
  Report Type: 
  Country: None (occurrence: None)
  Receive Date: 20091028
  Receipt Date: 20090915
  Transmission Date: 20100525
  Serious: Yes (Death, Other)
  Sender: FDA-Public Use
  Company Number: US-BAYER-200825905NA

PATIENT
  Age: 80 Year
  Sex: Female
  Weight: 64 kg

DRUGS (30)
  1. MAGNEVIST [Suspect]
     Indication: NUCLEAR MAGNETIC RESONANCE IMAGING BRAIN
  2. OMNISCAN [Suspect]
     Indication: NUCLEAR MAGNETIC RESONANCE IMAGING
     Dosage: ROUTE REPORTED AS ^FIRST VIA DISTAL PORT AND THEN VIA THE PROXIMAL PORT^
     Route: 050
     Dates: start: 20031204, end: 20031204
  3. OMNISCAN [Suspect]
     Dosage: DOSE REPORTED AS ^11^ 20ML VIALS
     Dates: start: 20050901, end: 20050901
  4. OMNISCAN [Suspect]
     Dosage: AS USED: 160 ML
     Dates: start: 20050920, end: 20050920
  5. OMNISCAN [Suspect]
     Dates: start: 20030523, end: 20030523
  6. OPTIMARK [Suspect]
     Indication: NUCLEAR MAGNETIC RESONANCE IMAGING
  7. MULTIHANCE [Suspect]
     Indication: NUCLEAR MAGNETIC RESONANCE IMAGING
  8. PROHANCE [Suspect]
     Indication: NUCLEAR MAGNETIC RESONANCE IMAGING
  9. UNSPECIFIED GADOLINIUM [Suspect]
     Indication: NUCLEAR MAGNETIC RESONANCE IMAGING ABDOMINAL
     Dates: start: 20050816, end: 20050816
  10. UNSPECIFIED GADOLINIUM [Suspect]
     Dates: start: 20010503, end: 20010503
  11. UNSPECIFIED GADOLINIUM [Suspect]
     Dates: start: 20010425, end: 20010425
  12. UNSPECIFIED GADOLINIUM [Suspect]
     Dates: start: 20010305, end: 20010305
  13. ASPIRIN [Concomitant]
  14. NIFEREX [Concomitant]
  15. COREG [Concomitant]
     Route: 048
  16. FOLIC ACID [Concomitant]
  17. LOVASTATIN [Concomitant]
  18. DILTIAZEM [Concomitant]
  19. POTASSIUM CHLORIDE [Concomitant]
     Dosage: DOSE: 20 MEQ/L
  20. PLENDIL [Concomitant]
  21. K-DUR [Concomitant]
  22. NEPHROVITE [Concomitant]
  23. EPOGEN [Concomitant]
     Dosage: WITH DIALYSIS AS PER DIALYSIS PROTOCOL (8000 UNITS TIW AS OF MAR 2001)
  24. VENOFER [Concomitant]
     Dosage: WITH DIALYSIS AS PER DIALYSIS PROTOCOL
  25. ZEMPLAR [Concomitant]
     Dosage: WITH DIALYSIS AS PER DIALYSIS PROTOCOL
  26. RENAGEL [Concomitant]
     Dosage: START DATE UNKNOWN; NOTED AS OF OCT 2005
  27. AMIODARONE [Concomitant]
  28. FUROSEMIDE [Concomitant]
  29. IMDUR [Concomitant]
  30. HYDRALAZINE HCL [Concomitant]

REACTIONS (20)
  - ANXIETY [None]
  - ARTHRALGIA [None]
  - DRY SKIN [None]
  - EMOTIONAL DISTRESS [None]
  - ERYTHEMA [None]
  - EXTREMITY CONTRACTURE [None]
  - FATIGUE [None]
  - INJURY [None]
  - JOINT RANGE OF MOTION DECREASED [None]
  - JOINT STIFFNESS [None]
  - MUSCLE RIGIDITY [None]
  - MUSCULOSKELETAL STIFFNESS [None]
  - NEPHROGENIC SYSTEMIC FIBROSIS [None]
  - OEDEMA [None]
  - PAIN [None]
  - PRURITUS [None]
  - SKIN HYPERTROPHY [None]
  - SKIN INDURATION [None]
  - SKIN TIGHTNESS [None]
  - SKIN WRINKLING [None]
